FAERS Safety Report 20898776 (Version 1)
Quarter: 2022Q2

REPORT INFORMATION
  Report Type: Spontaneous
  Country: RU (occurrence: None)
  Receive Date: 20220601
  Receipt Date: 20220601
  Transmission Date: 20220721
  Serious: Yes (Other)
  Sender: FDA-Public Use
  Company Number: RU-ROCHE-3102918

PATIENT
  Age: 49 Year

DRUGS (1)
  1. ATEZOLIZUMAB [Suspect]
     Active Substance: ATEZOLIZUMAB
     Indication: Lung neoplasm malignant
     Dosage: FROM DEC/2020, MAINTENANCE THERAPY WITH ATEZOLIZUMAB 1,200 MG ONCE EVERY 21 DAYS?MAY/2022, MAINTENAN
     Route: 065
     Dates: start: 20200915

REACTIONS (3)
  - Pneumonia viral [Unknown]
  - Vascular encephalopathy [Unknown]
  - Therapy partial responder [Unknown]

NARRATIVE: CASE EVENT DATE: 20201101
